FAERS Safety Report 8176465-9 (Version None)
Quarter: 2012Q1

REPORT INFORMATION
  Report Type: 
  Country: None (occurrence: None)
  Receive Date: 20120301
  Receipt Date: 20120229
  Transmission Date: 20120608
  Serious: Yes (Other)
  Sender: FDA-Public Use
  Company Number: US-PFIZER INC-2012054322

PATIENT
  Sex: Female
  Weight: 68.027 kg

DRUGS (3)
  1. TRAMADOL [Concomitant]
     Indication: BACK PAIN
     Dosage: UNK
  2. CHANTIX [Suspect]
     Dosage: 1 MG, 2X/DAY
     Route: 048
  3. CHANTIX [Suspect]
     Indication: SMOKING CESSATION THERAPY
     Dosage: 0.5 MG, 1X/DAY
     Route: 048
     Dates: start: 20111201

REACTIONS (4)
  - NASOPHARYNGITIS [None]
  - ABNORMAL DREAMS [None]
  - MALAISE [None]
  - BRONCHITIS [None]
